FAERS Safety Report 8001728-7 (Version None)
Quarter: 2011Q4

REPORT INFORMATION
  Report Type: 
  Country: None (occurrence: None)
  Receive Date: 20111222
  Receipt Date: 20110830
  Transmission Date: 20120403
  Serious: No
  Sender: FDA-Public Use
  Company Number: US-BAYER-2011-079943

PATIENT
  Sex: Male

DRUGS (4)
  1. AVELOX [Suspect]
     Dosage: 400 MG, QD
     Route: 048
     Dates: start: 20110501
  2. PERCOCET [Concomitant]
  3. ATENOLOL [Concomitant]
     Dosage: UNK
  4. CELEXA [Concomitant]

REACTIONS (1)
  - MYALGIA [None]
